FAERS Safety Report 6527265-4 (Version None)
Quarter: 2010Q1

REPORT INFORMATION
  Report Type: 
  Country: None (occurrence: None)
  Receive Date: 20100105
  Receipt Date: 20091228
  Transmission Date: 20100710
  Serious: Yes (Other)
  Sender: FDA-Public Use
  Company Number: US-PFIZER INC-2009315846

PATIENT
  Sex: Male
  Weight: 74.83 kg

DRUGS (3)
  1. VIAGRA [Suspect]
     Indication: ERECTILE DYSFUNCTION
     Dosage: FREQUENCY: AS NEEDED,
  2. VYTORIN [Concomitant]
     Indication: BLOOD CHOLESTEROL
     Dosage: UNK
  3. PROSCAR [Concomitant]
     Indication: PROSTATOMEGALY
     Dosage: UNK
     Dates: end: 20090101

REACTIONS (3)
  - FLUSHING [None]
  - PROSTATOMEGALY [None]
  - URINARY RETENTION [None]
